FAERS Safety Report 15311846 (Version 1)
Quarter: 2018Q3

REPORT INFORMATION
  Report Type: Spontaneous
  Country: US (occurrence: US)
  Receive Date: 20180814
  Receipt Date: 20180814
  Transmission Date: 20181010
  Serious: Yes (Disabling)
  Sender: FDA-Public Use
  Company Number: None

PATIENT
  Age: 53 Year
  Sex: Female
  Weight: 62.1 kg

DRUGS (7)
  1. CYMBALTA [Suspect]
     Active Substance: DULOXETINE HYDROCHLORIDE
     Indication: DEPRESSION
     Dosage: ?          QUANTITY:2 CAPSULE(S);?
  2. MULTI VITAMIN [Concomitant]
     Active Substance: VITAMINS
  3. C [Concomitant]
  4. FLAXSEED [Concomitant]
     Active Substance: FLAX SEED
  5. D [Concomitant]
  6. FISH OIL [Concomitant]
     Active Substance: FISH OIL
  7. E [Concomitant]

REACTIONS (11)
  - Myalgia [None]
  - Fatigue [None]
  - Musculoskeletal stiffness [None]
  - Malaise [None]
  - Hypersensitivity [None]
  - Product substitution issue [None]
  - Mobility decreased [None]
  - Drug ineffective [None]
  - Asthenia [None]
  - Pain [None]
  - Gait inability [None]
